FAERS Safety Report 7258862-9 (Version None)
Quarter: 2011Q1

REPORT INFORMATION
  Report Type: 
  Country: None (occurrence: None)
  Receive Date: 20110129
  Receipt Date: 20100628
  Transmission Date: 20110831
  Serious: No
  Sender: FDA-Public Use
  Company Number: US-ABBOTT-10P-163-0650878-00

PATIENT
  Sex: Female
  Weight: 47.67 kg

DRUGS (3)
  1. HUMIRA [Suspect]
     Indication: PRODUCT USED FOR UNKNOWN INDICATION
     Route: 058
     Dates: start: 20100101
  2. FOSAMAX [Concomitant]
     Indication: OSTEOPOROSIS
  3. FOSAMAX [Concomitant]
     Indication: OSTEOPENIA

REACTIONS (4)
  - INJECTION SITE ERYTHEMA [None]
  - DEVICE MALFUNCTION [None]
  - INJECTION SITE PAIN [None]
  - ANXIETY [None]
